FAERS Safety Report 4520240-0 (Version None)
Quarter: 2004Q4

REPORT INFORMATION
  Report Type: 
  Country: None (occurrence: None)
  Receive Date: 20041202
  Receipt Date: 20041202
  Transmission Date: 20050328
  Serious: Yes (Life-Threatening)
  Sender: FDA-Public Use
  Company Number: None

PATIENT
  Age: 63 Year
  Sex: Male
  Weight: 72.5755 kg

DRUGS (1)
  1. ETANERCEPT  50 [Suspect]
     Indication: RHEUMATOID ARTHRITIS
     Dosage: 50 MG  2X/WEEK  SUBCUTANEOUS
     Route: 058
     Dates: start: 20040401, end: 20040506

REACTIONS (4)
  - ASPERGILLOSIS [None]
  - INFLAMMATION [None]
  - MASS [None]
  - SINUS DISORDER [None]
